FAERS Safety Report 10792540 (Version 2)
Quarter: 2015Q1

REPORT INFORMATION
  Report Type: Report from Study
  Country: BR (occurrence: BR)
  Receive Date: 20150213
  Receipt Date: 20150226
  Transmission Date: 20150721
  Serious: Yes (Death)
  Sender: FDA-Public Use
  Company Number: BR-SA-2015SA018345

PATIENT
  Sex: Male

DRUGS (1)
  1. LANTUS [Suspect]
     Active Substance: INSULIN GLARGINE
     Route: 065

REACTIONS (7)
  - Renal failure [Fatal]
  - Hepatic cancer [Fatal]
  - Hepatitis [Fatal]
  - Pneumonia [Fatal]
  - Metastases to lung [Fatal]
  - Infection [Fatal]
  - Infarction [Fatal]
